FAERS Safety Report 8865802 (Version 1)
Quarter: 2012Q4

REPORT INFORMATION
  Report Type: 
  Country: US (occurrence: US)
  Receive Date: 20121024
  Receipt Date: 20121024
  Transmission Date: 20130627
  Serious: No
  Sender: FDA-Public Use
  Company Number: US-AMGEN-USASP2011064840

PATIENT
  Age: 66 Year
  Sex: Male

DRUGS (2)
  1. ENBREL [Suspect]
     Indication: PRODUCT USED FOR UNKNOWN INDICATION
     Dosage: 50 mg, qwk
     Route: 058
  2. DIOVAN [Concomitant]
     Dosage: 40 mg, UNK

REACTIONS (2)
  - Cough [Unknown]
  - Nasopharyngitis [Unknown]
